FAERS Safety Report 6644731-1 (Version None)
Quarter: 2010Q1

REPORT INFORMATION
  Report Type: 
  Country: None (occurrence: None)
  Receive Date: 20100322
  Receipt Date: 20100310
  Transmission Date: 20100710
  Serious: Yes (Other)
  Sender: FDA-Public Use
  Company Number: CA-PFIZER INC-2010031733

PATIENT
  Age: 70 Year
  Sex: Female

DRUGS (4)
  1. DALACIN [Suspect]
     Indication: VAGINAL INFECTION
     Dosage: 1 APPLICATORFUL DAILY
     Route: 061
     Dates: start: 20100127, end: 20100203
  2. CALCIUM [Concomitant]
     Dosage: UNK
  3. PROVERA [Concomitant]
     Dosage: UNK
  4. PREMARIN [Concomitant]
     Dosage: UNK

REACTIONS (6)
  - CIRCUMSTANCE OR INFORMATION CAPABLE OF LEADING TO MEDICATION ERROR [None]
  - DRUG INEFFECTIVE [None]
  - INCORRECT DOSE ADMINISTERED [None]
  - VAGINAL EXFOLIATION [None]
  - VULVOVAGINAL BURNING SENSATION [None]
  - VULVOVAGINAL PAIN [None]
